FAERS Safety Report 17442881 (Version 1)
Quarter: 2020Q1

REPORT INFORMATION
  Report Type: Spontaneous
  Country: US (occurrence: US)
  Receive Date: 20200205
  Receipt Date: 20200205
  Transmission Date: 20200409
  Serious: Yes (Hospitalization)
  Sender: FDA-Public Use
  Company Number: None

PATIENT
  Age: 63 Year
  Sex: Female
  Weight: 53.7 kg

DRUGS (3)
  1. 5-FLUOROURACIL (5-FU) [Suspect]
     Active Substance: FLUOROURACIL
     Dates: end: 20190613
  2. LEUCOVORIN CALCIUM. [Suspect]
     Active Substance: LEUCOVORIN CALCIUM
     Dates: end: 20190611
  3. ELOXATIN [Suspect]
     Active Substance: OXALIPLATIN
     Dates: end: 20190611

REACTIONS (2)
  - Oestrogen receptor assay positive [None]
  - Intraductal proliferative breast lesion [None]

NARRATIVE: CASE EVENT DATE: 20191105
